FAERS Safety Report 23620701 (Version 1)
Quarter: 2024Q1

REPORT INFORMATION
  Report Type: Spontaneous
  Country: PL (occurrence: PL)
  Receive Date: 20240312
  Receipt Date: 20240312
  Transmission Date: 20240410
  Serious: Yes (Hospitalization, Other)
  Sender: FDA-Public Use
  Company Number: PL-NOVEN PHARMACEUTICALS, INC.-2024-NOV-PL000257

PATIENT
  Age: 19 Year
  Sex: Male

DRUGS (1)
  1. METHYLPHENIDATE [Suspect]
     Active Substance: METHYLPHENIDATE
     Indication: Product used for unknown indication
     Dosage: UNKNOWN,UNK
     Route: 062

REACTIONS (2)
  - Suicide attempt [Recovering/Resolving]
  - Autism spectrum disorder [Recovering/Resolving]
